FAERS Safety Report 4429509-1 (Version None)
Quarter: 2004Q3

REPORT INFORMATION
  Report Type: 
  Country: None (occurrence: None)
  Receive Date: 20040818
  Receipt Date: 20040818
  Transmission Date: 20050211
  Serious: Yes (Life-Threatening, Hospitalization)
  Sender: FDA-Public Use
  Company Number: None

PATIENT
  Age: 60 Year
  Sex: Female
  Weight: 106.4 kg

DRUGS (9)
  1. GEMCITABINE 1500 MG/M2 Q WEEK FOR 3 WEEKS, 1 WEEK OFF, REPEAT [Suspect]
     Indication: PANCREATIC CARCINOMA
     Dosage: 1500 MG/M2 Q WEEK FOR 3 WEEKS, 1 WEEK OFF, REPEAT
     Dates: start: 20040727
  2. GEMCITABINE 1500 MG/M2 Q WEEK FOR 3 WEEKS, 1 WEEK OFF, REPEAT [Suspect]
     Indication: PANCREATIC CARCINOMA
     Dosage: 1500 MG/M2 Q WEEK FOR 3 WEEKS, 1 WEEK OFF, REPEAT
     Dates: start: 20040803
  3. REGLAN [Concomitant]
  4. ZOFRAN [Concomitant]
  5. AMBIEN [Concomitant]
  6. PROTONIX [Concomitant]
  7. FENTYNYL [Concomitant]
  8. LENOXYL [Concomitant]
  9. ZETRA [Concomitant]

REACTIONS (5)
  - EMBOLISM [None]
  - INTESTINAL OBSTRUCTION [None]
  - OEDEMA PERIPHERAL [None]
  - PAIN IN EXTREMITY [None]
  - PULMONARY EMBOLISM [None]
